FAERS Safety Report 10077771 (Version 1)
Quarter: 2014Q2

REPORT INFORMATION
  Report Type: Spontaneous
  Country: US (occurrence: US)
  Receive Date: 20140414
  Receipt Date: 20140414
  Transmission Date: 20141212
  Serious: Yes (Hospitalization, Other)
  Sender: FDA-Public Use
  Company Number: US-RB-065994-14

PATIENT
  Age: 0 Year
  Sex: Male

DRUGS (7)
  1. SUBOXONE FILM [Suspect]
     Indication: DRUG DEPENDENCE
     Dosage: SUBOXONE FILM
     Route: 064
     Dates: start: 201308, end: 201312
  2. PERCOCET [Suspect]
     Indication: DRUG DEPENDENCE
     Dosage: MOTHER DOSING DETAILS UNKNOWN
     Route: 064
     Dates: start: 201312, end: 201312
  3. ZOFRAN [Concomitant]
     Indication: NAUSEA
     Dosage: MOTHER DOSING DETAILS UNKNOWN. TAKES AS NEEDED.
     Route: 064
     Dates: end: 20140113
  4. ZOLOFT [Concomitant]
     Indication: DEPRESSION
     Dosage: MOTHER DOSING DETAILS UNKNOWN
     Route: 064
     Dates: end: 20140113
  5. PRENATAL VITAMINS [Concomitant]
     Indication: NUTRITIONAL SUPPLEMENTATION
     Dosage: MOTHER TAKES 1 UNIT DAILY
     Route: 064
     Dates: end: 20140113
  6. NICOTINE [Concomitant]
     Indication: NICOTINE DEPENDENCE
     Dosage: MOTHER SMOKES 1 TO 1/2 PACK OF CIGARETTES PER DAY
     Route: 064
     Dates: start: 201304, end: 20140113
  7. IRON PILLS [Concomitant]
     Indication: ROUTINE HEALTH MAINTENANCE
     Dosage: MOTHER DOSING DETAILS UNKNOWN
     Route: 064
     Dates: end: 20140113

REACTIONS (2)
  - Foetal exposure during pregnancy [Recovered/Resolved]
  - Low birth weight baby [Recovered/Resolved]
